FAERS Safety Report 13071067 (Version 2)
Quarter: 2017Q1

REPORT INFORMATION
  Report Type: Spontaneous
  Country: JP (occurrence: JP)
  Receive Date: 20161229
  Receipt Date: 20170212
  Transmission Date: 20170428
  Serious: Yes (Hospitalization)
  Sender: FDA-Public Use
  Company Number: PHJP2016JP028062

PATIENT
  Age: 38 Year
  Sex: Female
  Weight: 45 kg

DRUGS (5)
  1. ALTAT [Concomitant]
     Active Substance: ROXATIDINE ACETATE HYDROCHLORIDE
     Indication: PRODUCT USED FOR UNKNOWN INDICATION
     Dosage: 75 MG,QD
     Route: 065
  2. NEORAL [Suspect]
     Active Substance: CYCLOSPORINE
     Indication: IGA NEPHROPATHY
     Dosage: 75 MG, BID
     Route: 048
  3. ATONIN [Concomitant]
     Indication: INDUCED LABOUR
     Dosage: UNK
     Route: 065
     Dates: start: 20140723, end: 20140724
  4. IMURAN [Concomitant]
     Active Substance: AZATHIOPRINE
     Indication: PRODUCT USED FOR UNKNOWN INDICATION
     Dosage: 50MG, QD
     Route: 065
  5. MEDROL [Concomitant]
     Active Substance: METHYLPREDNISOLONE
     Indication: PRODUCT USED FOR UNKNOWN INDICATION
     Dosage: 4 MG, QD
     Route: 065

REACTIONS (6)
  - Maternal exposure during pregnancy [Unknown]
  - Mental disorder [Recovered/Resolved]
  - Gestational hypertension [Recovered/Resolved]
  - Tachycardia [Recovered/Resolved]
  - Intrapartum haemorrhage [Recovered/Resolved]
  - Haemoglobin decreased [Recovering/Resolving]

NARRATIVE: CASE EVENT DATE: 201402
